FAERS Safety Report 9088030 (Version 2)
Quarter: 2013Q1

REPORT INFORMATION
  Report Type: Spontaneous
  Country: FR (occurrence: FR)
  Receive Date: 20130201
  Receipt Date: 20130211
  Transmission Date: 20140127
  Serious: Yes (Hospitalization)
  Sender: FDA-Public Use
  Company Number: FR-PFIZER INC-2013039585

PATIENT
  Age: 64 Year
  Sex: Male

DRUGS (3)
  1. TAHOR [Suspect]
     Indication: CARDIAC OPERATION
     Dosage: 40 MG, DAILY
     Route: 048
     Dates: start: 201210
  2. PRADAXA [Suspect]
     Indication: CARDIAC OPERATION
     Dosage: 110 MG, 2X/DAY
     Route: 048
     Dates: start: 201210
  3. DUOPLAVIN [Suspect]
     Indication: CARDIAC OPERATION
     Dosage: UNK
     Dates: start: 201210

REACTIONS (1)
  - Haematuria [Recovered/Resolved]
